FAERS Safety Report 5837642-2 (Version None)
Quarter: 2008Q3

REPORT INFORMATION
  Report Type: 
  Country: None (occurrence: None)
  Receive Date: 20080807
  Receipt Date: 20080731
  Transmission Date: 20090109
  Serious: Yes (Other)
  Sender: FDA-Public Use
  Company Number: PHHY2008FR16555

PATIENT
  Age: 77 Year
  Sex: Female

DRUGS (4)
  1. LESCOL [Suspect]
     Indication: HYPERCHOLESTEROLAEMIA
     Dosage: 40 MG PER DAY
     Dates: start: 20080501, end: 20080729
  2. LESCOL [Suspect]
     Dosage: 80 MG PER DAY
     Dates: start: 20080729
  3. PREVISCAN [Concomitant]
     Indication: INTERNATIONAL NORMALISED RATIO
     Dosage: 1.5 TABLET QD
     Route: 048
     Dates: end: 20080721
  4. PREVISCAN [Concomitant]
     Dosage: 1 DF, QD
     Route: 048
     Dates: start: 20080721

REACTIONS (2)
  - CONJUNCTIVAL HAEMORRHAGE [None]
  - INTERNATIONAL NORMALISED RATIO INCREASED [None]
